FAERS Safety Report 17545656 (Version 4)
Quarter: 2024Q1

REPORT INFORMATION
  Report Type: Spontaneous
  Country: IT (occurrence: IT)
  Receive Date: 20200316
  Receipt Date: 20240206
  Transmission Date: 20240410
  Serious: Yes (Death, Life-Threatening, Hospitalization, Other)
  Sender: FDA-Public Use
  Company Number: IT-002147023-NVSC2020IT033169

PATIENT
  Age: 56 Year
  Sex: Male

DRUGS (18)
  1. LAMIVUDINE [Suspect]
     Active Substance: LAMIVUDINE
     Indication: Product used for unknown indication
     Dosage: 600 MILLIGRAM, QD (200 MG, TID)
     Route: 065
  2. LAMIVUDINE [Suspect]
     Active Substance: LAMIVUDINE
     Dosage: 100 MG THREE TIMES A DAY
     Route: 065
  3. GANCICLOVIR [Suspect]
     Active Substance: GANCICLOVIR
     Indication: Cytomegalovirus hepatitis
     Dosage: 350 MG(EVERY 12 HOURS)
     Route: 042
  4. TENOFOVIR DISOPROXIL [Suspect]
     Active Substance: TENOFOVIR DISOPROXIL
     Indication: Product used for unknown indication
     Dosage: 245 MG, QD
     Route: 065
  5. NALOXONE HYDROCHLORIDE\OXYCODONE HYDROCHLORIDE [Suspect]
     Active Substance: NALOXONE HYDROCHLORIDE\OXYCODONE HYDROCHLORIDE
     Indication: Chronic inflammatory demyelinating polyradiculoneuropathy
     Dosage: 10/5 MG TWICE DAILY
     Route: 048
  6. RITUXIMAB [Suspect]
     Active Substance: RITUXIMAB
     Indication: Chronic inflammatory demyelinating polyradiculoneuropathy
     Dosage: 1000 MG
     Route: 065
     Dates: start: 201806
  7. RITUXIMAB [Suspect]
     Active Substance: RITUXIMAB
     Dosage: 1000 MG
     Route: 065
     Dates: start: 2018
  8. RITUXIMAB [Suspect]
     Active Substance: RITUXIMAB
     Dosage: UNK (2 WEEKS LATER)
     Route: 065
  9. CANDESARTAN [Concomitant]
     Active Substance: CANDESARTAN
     Indication: Hypertension
     Dosage: 8 MILLIGRAM
     Route: 065
  10. ALENDRONIC ACID [Concomitant]
     Active Substance: ALENDRONIC ACID
     Indication: Chronic inflammatory demyelinating polyradiculoneuropathy
     Dosage: 70 MG
     Route: 048
  11. NALOXONE [Concomitant]
     Active Substance: NALOXONE
     Indication: Chronic inflammatory demyelinating polyradiculoneuropathy
     Dosage: 10 MG, QD
     Route: 065
  12. LEVOTHYROXINE [Concomitant]
     Active Substance: LEVOTHYROXINE\LEVOTHYROXINE SODIUM
     Indication: Chronic inflammatory demyelinating polyradiculoneuropathy
     Dosage: 75 MCG/ML
     Route: 048
  13. PREDNISONE [Concomitant]
     Active Substance: PREDNISONE
     Indication: Product used for unknown indication
     Dosage: 50 MG
     Route: 048
  14. RANITIDINE [Concomitant]
     Active Substance: RANITIDINE
     Indication: Product used for unknown indication
     Dosage: 300 MILLIGRAM, QD
     Route: 048
  15. ALLOPURINOL [Concomitant]
     Active Substance: ALLOPURINOL
     Indication: Chronic inflammatory demyelinating polyradiculoneuropathy
     Dosage: 300 MG
     Route: 048
  16. CANDESTAN [Concomitant]
     Indication: Hypertension
     Dosage: 8 MG
     Route: 065
  17. OXYCODONE [Concomitant]
     Active Substance: OXYCODONE\OXYCODONE HYDROCHLORIDE
     Indication: Chronic inflammatory demyelinating polyradiculoneuropathy
     Dosage: 10 MILLIGRAM, BID
     Route: 065
  18. PIPERACILLIN SODIUM\TAZOBACTAM SODIUM [Concomitant]
     Active Substance: PIPERACILLIN SODIUM\TAZOBACTAM SODIUM
     Indication: Antibiotic therapy
     Dosage: 4.5 GRAM, Q8H
     Route: 042

REACTIONS (15)
  - Multiple organ dysfunction syndrome [Fatal]
  - Acute on chronic liver failure [Fatal]
  - Acute hepatic failure [Fatal]
  - Hepatitis B reactivation [Fatal]
  - Hepatic encephalopathy [Unknown]
  - Hepatic cirrhosis [Unknown]
  - Blood lactic acid increased [Unknown]
  - International normalised ratio increased [Unknown]
  - Cholecystitis [Unknown]
  - Metabolic acidosis [Unknown]
  - Jaundice [Unknown]
  - Chromaturia [Unknown]
  - Diarrhoea [Unknown]
  - Nausea [Unknown]
  - Product use in unapproved indication [Unknown]

NARRATIVE: CASE EVENT DATE: 20180901
